FAERS Safety Report 17060729 (Version 1)
Quarter: 2019Q4

REPORT INFORMATION
  Report Type: Spontaneous
  Country: US (occurrence: US)
  Receive Date: 20191121
  Receipt Date: 20191121
  Transmission Date: 20200122
  Serious: Yes (Other)
  Sender: FDA-Public Use
  Company Number: US-BAYER-2019-207628

PATIENT
  Age: 26 Year
  Sex: Female

DRUGS (2)
  1. ACETYLSALICYLIC ACID (CARDIO) [Suspect]
     Active Substance: ASPIRIN
     Indication: TRANSIENT ISCHAEMIC ATTACK
     Dosage: UNK UNK, OW
  2. HEPARIN [Concomitant]
     Active Substance: HEPARIN SODIUM
     Indication: TRANSIENT ISCHAEMIC ATTACK
     Dosage: 10000 UNITS,BID

REACTIONS (3)
  - Contraindicated product administered [None]
  - Maternal exposure during pregnancy [None]
  - Breech presentation [None]
